FAERS Safety Report 24140623 (Version 2)
Quarter: 2024Q4

REPORT INFORMATION
  Report Type: Spontaneous
  Country: IT (occurrence: IT)
  Receive Date: 20240726
  Receipt Date: 20241105
  Transmission Date: 20250115
  Serious: No
  Sender: ORGANON
  Company Number: IT-SUN PHARMACEUTICAL INDUSTRIES LTD-2024RR-456921

PATIENT
  Age: 79 Year
  Sex: Female

DRUGS (1)
  1. EZETIMIBE [Suspect]
     Active Substance: EZETIMIBE
     Indication: Dyslipidaemia
     Dosage: UNK
     Route: 065

REACTIONS (1)
  - Drug intolerance [Unknown]
